FAERS Safety Report 17438993 (Version 3)
Quarter: 2020Q3

REPORT INFORMATION
  Report Type: Other
  Country: KR (occurrence: KR)
  Receive Date: 20200220
  Receipt Date: 20200729
  Transmission Date: 20201104
  Serious: Yes (Other)
  Sender: FDA-Public Use
  Company Number: KR-ROCHE-2547605

PATIENT
  Age: 83 Year
  Sex: Female

DRUGS (3)
  1. PENNEL (SOUTH KOREA) [Concomitant]
     Route: 048
     Dates: start: 20190208
  2. ALECTINIB. [Suspect]
     Active Substance: ALECTINIB
     Indication: NON-SMALL CELL LUNG CANCER METASTATIC
     Route: 048
     Dates: start: 20190123, end: 20191202
  3. URSA [Concomitant]
     Active Substance: URSODIOL
     Route: 048
     Dates: start: 20190208

REACTIONS (9)
  - Decreased appetite [Recovered/Resolved]
  - Decreased appetite [Unknown]
  - Constipation [Not Recovered/Not Resolved]
  - Aspartate aminotransferase increased [Recovered/Resolved]
  - Anaemia [Unknown]
  - Back pain [Unknown]
  - Nasopharyngitis [Unknown]
  - Atrial fibrillation [Unknown]
  - Interstitial lung disease [Unknown]

NARRATIVE: CASE EVENT DATE: 20190123
